FAERS Safety Report 8227214-7 (Version None)
Quarter: 2012Q1

REPORT INFORMATION
  Report Type: 
  Country: None (occurrence: None)
  Receive Date: 20120322
  Receipt Date: 20120314
  Transmission Date: 20120608
  Serious: Yes (Hospitalization, Other)
  Sender: FDA-Public Use
  Company Number: US-BAYER-2011-116973

PATIENT
  Age: 44 Year
  Sex: Female
  Weight: 68 kg

DRUGS (10)
  1. YASMIN [Suspect]
     Indication: PREMENSTRUAL SYNDROME
     Dosage: UNK
     Dates: start: 20050101, end: 20090101
  2. DROSPIRENONE AND ETHINYL ESTRADIOL [Suspect]
     Indication: PREMENSTRUAL SYNDROME
     Dosage: UNK
     Dates: start: 20050101, end: 20090101
  3. ADVIL PM [Concomitant]
  4. YAZ [Suspect]
     Indication: PREMENSTRUAL SYNDROME
     Dosage: UNK
     Dates: start: 20050101, end: 20090101
  5. ASPIRIN [Concomitant]
     Dosage: UNK
  6. OMEPRAZOLE [Concomitant]
     Dosage: 10 MG, QD
     Route: 048
  7. MULTI-VITAMIN [Concomitant]
  8. PRILOSEC [Concomitant]
     Dosage: 10 MG, QD
  9. LISINOPRIL [Concomitant]
     Indication: HYPERTENSION
     Dosage: 20 MG, QD
     Dates: start: 20091001
  10. MVI WITH CALCIUM [Concomitant]
     Dosage: 1 TABLET DAILY
     Route: 048

REACTIONS (3)
  - PULMONARY EMBOLISM [None]
  - PAIN [None]
  - ABORTION SPONTANEOUS [None]
